FAERS Safety Report 8378949-7 (Version None)
Quarter: 2012Q2

REPORT INFORMATION
  Report Type: 
  Country: None (occurrence: None)
  Receive Date: 20120523
  Receipt Date: 20120522
  Transmission Date: 20120825
  Serious: No
  Sender: FDA-Public Use
  Company Number: US-PFIZER INC-2011196015

PATIENT
  Age: 60 Year
  Sex: Female

DRUGS (1)
  1. SUTENT [Suspect]
     Indication: METASTATIC RENAL CELL CARCINOMA
     Dosage: 25 MG, UNK
     Route: 048

REACTIONS (9)
  - DISEASE PROGRESSION [None]
  - METASTATIC RENAL CELL CARCINOMA [None]
  - HAIR COLOUR CHANGES [None]
  - PARAESTHESIA [None]
  - NAUSEA [None]
  - DIARRHOEA [None]
  - PAIN IN EXTREMITY [None]
  - DYSGEUSIA [None]
  - ORAL PAIN [None]
